FAERS Safety Report 22162777 (Version 1)
Quarter: 2023Q1

REPORT INFORMATION
  Report Type: Report from Study
  Country: US (occurrence: US)
  Receive Date: 20230331
  Receipt Date: 20230331
  Transmission Date: 20230418
  Serious: No
  Sender: FDA-Public Use
  Company Number: US-002147023-NVSC2023US073253

PATIENT
  Sex: Female
  Weight: 71.66 kg

DRUGS (5)
  1. METHOTREXATE [Suspect]
     Active Substance: METHOTREXATE
     Indication: Psoriasis
     Dosage: UNK
     Route: 065
  2. ROSUVASTATIN [Suspect]
     Active Substance: ROSUVASTATIN
     Indication: Psoriasis
     Dosage: 5 MG
     Route: 065
  3. TEMAZEPAM [Suspect]
     Active Substance: TEMAZEPAM
     Indication: Psoriasis
     Dosage: 15 MG
     Route: 048
  4. NALTREXONE [Suspect]
     Active Substance: NALTREXONE
     Indication: Psoriasis
     Dosage: 4 MG
     Route: 065
  5. PROGESTERONE [Suspect]
     Active Substance: PROGESTERONE
     Indication: Psoriasis
     Dosage: 10 %
     Route: 061

REACTIONS (4)
  - Psoriasis [Unknown]
  - Seborrhoeic keratosis [Unknown]
  - Rash erythematous [Unknown]
  - Drug ineffective [Unknown]
